FAERS Safety Report 4717110-1 (Version None)
Quarter: 2005Q3

REPORT INFORMATION
  Report Type: 
  Country: None (occurrence: None)
  Receive Date: 20050719
  Receipt Date: 20050630
  Transmission Date: 20060218
  Serious: Yes (Death, Life-Threatening, Hospitalization)
  Sender: FDA-Public Use
  Company Number: 200516083GDDC

PATIENT
  Age: 45 Year
  Sex: Female
  Weight: 70 kg

DRUGS (1)
  1. DOCETAXEL [Suspect]
     Indication: BREAST CANCER
     Route: 042
     Dates: start: 20050621, end: 20050621

REACTIONS (14)
  - ALANINE AMINOTRANSFERASE INCREASED [None]
  - ASPARTATE AMINOTRANSFERASE INCREASED [None]
  - BLOOD BILIRUBIN INCREASED [None]
  - COLITIS [None]
  - DIARRHOEA [None]
  - FASCIITIS [None]
  - FEBRILE NEUTROPENIA [None]
  - GENITAL PRURITUS FEMALE [None]
  - MULTI-ORGAN FAILURE [None]
  - MUSCLE NECROSIS [None]
  - PAIN [None]
  - RENAL FAILURE [None]
  - SEPSIS [None]
  - SKIN DISORDER [None]
